FAERS Safety Report 15587595 (Version 1)
Quarter: 2018Q4

REPORT INFORMATION
  Report Type: Spontaneous
  Country: US (occurrence: US)
  Receive Date: 20181106
  Receipt Date: 20181106
  Transmission Date: 20190205
  Serious: Yes (Other)
  Sender: FDA-Public Use
  Company Number: None

PATIENT
  Age: 46 Year
  Sex: Female
  Weight: 58.5 kg

DRUGS (6)
  1. BABY ASPIRIN [Concomitant]
     Active Substance: ASPIRIN
  2. BUPROPION XL [Concomitant]
     Active Substance: BUPROPION
  3. AMITRIPTYLINE [Concomitant]
     Active Substance: AMITRIPTYLINE
  4. CLARITIN [Concomitant]
     Active Substance: LORATADINE
  5. EMGALITY [Suspect]
     Active Substance: GALCANEZUMAB-GNLM
     Indication: MIGRAINE PROPHYLAXIS
     Dosage: ?          QUANTITY:2 INJECTION(S);OTHER FREQUENCY:ONCE A MONTH;?
     Route: 030
     Dates: start: 20181009, end: 20181031
  6. ACYCLOVIR. [Concomitant]
     Active Substance: ACYCLOVIR

REACTIONS (2)
  - Rash [None]
  - Adverse drug reaction [None]

NARRATIVE: CASE EVENT DATE: 20181031
